FAERS Safety Report 4394703-5 (Version None)
Quarter: 2004Q3

REPORT INFORMATION
  Report Type: 
  Country: None (occurrence: None)
  Receive Date: 20040712
  Receipt Date: 20040701
  Transmission Date: 20050211
  Serious: Yes (Other)
  Sender: FDA-Public Use
  Company Number: IE-MERCK-0407GBR00019

PATIENT
  Age: 64 Year
  Sex: Female

DRUGS (3)
  1. PRAVASTATIN SODIUM [Concomitant]
     Route: 065
  2. VIOXX [Suspect]
     Indication: OSTEOARTHRITIS
     Route: 048
  3. VIOXX [Suspect]
     Route: 048

REACTIONS (2)
  - DIPLOPIA [None]
  - TRANSIENT ISCHAEMIC ATTACK [None]
